FAERS Safety Report 14773747 (Version 2)
Quarter: 2018Q2

REPORT INFORMATION
  Report Type: Spontaneous
  Country: CH (occurrence: CH)
  Receive Date: 20180418
  Receipt Date: 20180502
  Transmission Date: 20180711
  Serious: Yes (Hospitalization, Other)
  Sender: FDA-Public Use
  Company Number: CH-BIOGEN-2018BI00557898

PATIENT
  Sex: Male

DRUGS (1)
  1. AVONEX [Suspect]
     Active Substance: INTERFERON BETA-1A
     Indication: MULTIPLE SCLEROSIS
     Route: 030
     Dates: start: 20150128

REACTIONS (3)
  - Wound [Unknown]
  - Intervertebral disc protrusion [Unknown]
  - Streptococcal sepsis [Unknown]

NARRATIVE: CASE EVENT DATE: 2018
